FAERS Safety Report 10253187 (Version 1)
Quarter: 2014Q2

REPORT INFORMATION
  Report Type: Spontaneous
  Country: FR (occurrence: FR)
  Receive Date: 20140623
  Receipt Date: 20140623
  Transmission Date: 20141212
  Serious: Yes (Hospitalization)
  Sender: FDA-Public Use
  Company Number: FR-ALLERGAN-1413333US

PATIENT
  Sex: Female

DRUGS (1)
  1. BOTOX [Suspect]
     Indication: NEUROGENIC BLADDER
     Dosage: 200 UNITS, SINGLE
     Dates: start: 20140611, end: 20140611

REACTIONS (2)
  - Bladder pain [Not Recovered/Not Resolved]
  - Diplopia [Not Recovered/Not Resolved]
